FAERS Safety Report 8258861-4 (Version None)
Quarter: 2012Q2

REPORT INFORMATION
  Report Type: 
  Country: None (occurrence: None)
  Receive Date: 20120404
  Receipt Date: 20120323
  Transmission Date: 20120825
  Serious: Yes (Hospitalization)
  Sender: FDA-Public Use
  Company Number: US-DX529-2012DX000078

PATIENT
  Age: 30 Year
  Sex: Female
  Weight: 103.5 kg

DRUGS (8)
  1. LEXAPRO [Concomitant]
     Indication: PRODUCT USED FOR UNKNOWN INDICATION
  2. COREG [Concomitant]
     Indication: PRODUCT USED FOR UNKNOWN INDICATION
  3. KALBITOR [Suspect]
     Indication: HEREDITARY ANGIOEDEMA
     Dates: start: 20120126, end: 20120126
  4. KALBITOR [Suspect]
     Dates: start: 20120320, end: 20120320
  5. CINRYZE [Suspect]
     Indication: HEREDITARY ANGIOEDEMA
     Dates: end: 20120318
  6. KALBITOR [Suspect]
     Dates: start: 20120127, end: 20120127
  7. KALBITOR [Suspect]
     Dates: start: 20120201, end: 20120201
  8. INSULIN [Concomitant]
     Indication: DIABETES MELLITUS

REACTIONS (3)
  - HEREDITARY ANGIOEDEMA [None]
  - PULMONARY EMBOLISM [None]
  - DRUG INTERACTION [None]
